FAERS Safety Report 21860857 (Version 1)
Quarter: 2023Q1

REPORT INFORMATION
  Report Type: Report from Study
  Country: US (occurrence: US)
  Receive Date: 20230113
  Receipt Date: 20230113
  Transmission Date: 20230417
  Serious: No
  Sender: FDA-Public Use
  Company Number: US-ABBVIE-22K-163-4502658-00

PATIENT
  Sex: Male

DRUGS (3)
  1. SKYRIZI [Suspect]
     Active Substance: RISANKIZUMAB-RZAA
     Indication: Psoriasis
     Dosage: WEEK 0?STRENGTH: 150 MILLIGRAM
     Route: 058
     Dates: start: 20220602, end: 20220602
  2. SKYRIZI [Suspect]
     Active Substance: RISANKIZUMAB-RZAA
     Dosage: WEEK 4?STRENGTH: 150 MILLIGRAM
     Route: 058
     Dates: start: 20220630, end: 20220630
  3. SKYRIZI [Suspect]
     Active Substance: RISANKIZUMAB-RZAA
     Dosage: STRENGTH: 150 MILLIGRAM
     Route: 058
     Dates: start: 20220922

REACTIONS (3)
  - Dry skin [Unknown]
  - General physical condition abnormal [Unknown]
  - Psoriasis [Unknown]
